FAERS Safety Report 16901904 (Version 1)
Quarter: 2019Q4

REPORT INFORMATION
  Report Type: Spontaneous
  Country: US (occurrence: US)
  Receive Date: 20191010
  Receipt Date: 20191010
  Transmission Date: 20200122
  Serious: Yes (Death, Other)
  Sender: FDA-Public Use
  Company Number: US-SA-2019SA275515

PATIENT
  Age: 66 Year
  Sex: Female

DRUGS (1)
  1. GLIMEPIRIDE. [Suspect]
     Active Substance: GLIMEPIRIDE
     Indication: DIABETES MELLITUS
     Dosage: UNK, UNK

REACTIONS (7)
  - Diffuse large B-cell lymphoma recurrent [Fatal]
  - Appendix cancer [Fatal]
  - Hypoglycaemia [Fatal]
  - Lethargy [Fatal]
  - Lactic acidosis [Fatal]
  - Toxicity to various agents [Fatal]
  - Acute kidney injury [Fatal]
